FAERS Safety Report 6113098-X (Version None)
Quarter: 2009Q1

REPORT INFORMATION
  Report Type: 
  Country: None (occurrence: None)
  Receive Date: 20090312
  Receipt Date: 20090302
  Transmission Date: 20090719
  Serious: Yes (Hospitalization)
  Sender: FDA-Public Use
  Company Number: JP-EISAI MEDIAL RESEARCH-E3810-02607-SPO-JP

PATIENT
  Sex: Male

DRUGS (1)
  1. PARIET (RABEPRAZOLE) [Suspect]
     Dosage: UNKNOWN
     Route: 048
     Dates: start: 20070401, end: 20090203

REACTIONS (1)
  - COLITIS COLLAGENOUS [None]
